FAERS Safety Report 7957638-4 (Version None)
Quarter: 2011Q4

REPORT INFORMATION
  Report Type: 
  Country: None (occurrence: None)
  Receive Date: 20111205
  Receipt Date: 20111124
  Transmission Date: 20120403
  Serious: Yes (Other)
  Sender: FDA-Public Use
  Company Number: PHHY2011JP103622

PATIENT
  Age: 45 Year
  Sex: Male

DRUGS (1)
  1. RASILEZ [Suspect]
     Indication: HYPERTENSION
     Dosage: 150 MG
     Route: 048
     Dates: start: 20100209

REACTIONS (2)
  - RENAL IMPAIRMENT [None]
  - BLOOD CREATININE INCREASED [None]
